FAERS Safety Report 5925344-3 (Version None)
Quarter: 2008Q3

REPORT INFORMATION
  Report Type: 
  Country: None (occurrence: None)
  Receive Date: 20080909
  Receipt Date: 20071207
  Transmission Date: 20090109
  Serious: Yes (Disabling)
  Sender: FDA-Public Use
  Company Number: 163-20785-07090615

PATIENT
  Age: 58 Year
  Sex: Male

DRUGS (1)
  1. THALOMID [Suspect]
     Indication: MULTIPLE MYELOMA
     Dosage: 50 MG, 1 IN 1 D, ORAL
     Route: 048
     Dates: start: 20061007, end: 20061001

REACTIONS (6)
  - ABASIA [None]
  - HYPOAESTHESIA [None]
  - MUSCULAR WEAKNESS [None]
  - NEUROPATHY PERIPHERAL [None]
  - PARAESTHESIA [None]
  - SENSATION OF HEAVINESS [None]
